FAERS Safety Report 14481851 (Version 2)
Quarter: 2018Q1

REPORT INFORMATION
  Report Type: Report from Study
  Country: JP (occurrence: JP)
  Receive Date: 20180202
  Receipt Date: 20180228
  Transmission Date: 20180509
  Serious: Yes (Hospitalization)
  Sender: FDA-Public Use
  Company Number: JP-PFIZER INC-2018031334

PATIENT
  Age: 75 Year
  Sex: Male
  Weight: 46.1 kg

DRUGS (9)
  1. SOLYUGEN F [Concomitant]
     Indication: ACUTE KIDNEY INJURY
     Dosage: 500 ML, 1X/DAY
     Route: 042
     Dates: start: 20180117, end: 20180117
  2. SOLYUGEN F [Concomitant]
     Indication: DEHYDRATION
     Dosage: 500 ML, 4X/DAY(Q6H)
     Route: 042
     Dates: start: 20180119, end: 20180124
  3. ISOTONIC SODIUM CHLORIDE SOLUTION [Concomitant]
     Active Substance: SODIUM CHLORIDE
     Indication: DEHYDRATION
  4. AVOLVE [Concomitant]
     Active Substance: DUTASTERIDE
     Indication: PROSTATOMEGALY
     Dosage: 0.5 MG, DAILY
     Route: 048
     Dates: start: 20150610
  5. BOSULIF [Suspect]
     Active Substance: BOSUTINIB MONOHYDRATE
     Dosage: 300 MG, 1X/DAY
     Route: 048
     Dates: start: 20180216
  6. URIEF [Concomitant]
     Active Substance: SILODOSIN
     Indication: PROSTATOMEGALY
     Dosage: 4 MG, 2X/DAY
     Route: 048
     Dates: start: 20150602
  7. ISOTONIC SODIUM CHLORIDE SOLUTION [Concomitant]
     Active Substance: SODIUM CHLORIDE
     Indication: ACUTE KIDNEY INJURY
     Dosage: 500 ML, 2X/DAY
     Route: 042
     Dates: start: 20180121, end: 20180122
  8. BOSULIF [Suspect]
     Active Substance: BOSUTINIB MONOHYDRATE
     Indication: CHRONIC MYELOID LEUKAEMIA
     Dosage: 400 MG, 1X/DAY
     Route: 048
     Dates: start: 20171227, end: 20180122
  9. LOPERAMIDE HYDROCHLORIDE. [Concomitant]
     Active Substance: LOPERAMIDE HYDROCHLORIDE
     Indication: DIARRHOEA
     Dosage: 2 MG, AS NEEDED
     Route: 048
     Dates: start: 20180118, end: 20180123

REACTIONS (1)
  - Gastroenteritis [Recovered/Resolved]

NARRATIVE: CASE EVENT DATE: 20180122
